FAERS Safety Report 24580369 (Version 1)
Quarter: 2024Q4

REPORT INFORMATION
  Report Type: Report from Study
  Country: DE (occurrence: DE)
  Receive Date: 20241105
  Receipt Date: 20241105
  Transmission Date: 20250115
  Serious: Yes (Hospitalization)
  Sender: BAXTER
  Company Number: DE-BAXTER-2024BAX027072

PATIENT
  Age: 63 Year
  Sex: Female

DRUGS (4)
  1. OLIMEL [Suspect]
     Active Substance: AMINO ACIDS\DEXTROSE\SOYBEAN OIL
     Indication: Parenteral nutrition
     Dosage: 1000 ML AT AN UNSPECIFIED FREQUENCY ADMINISTERED VIA CENTRAL VENOUS ROUTE
     Route: 042
     Dates: start: 20240926
  2. CERNEVIT [Suspect]
     Active Substance: VITAMINS
     Indication: Parenteral nutrition
     Dosage: 750 MG AT AN UNSPECIFIED FREQUENCY ADMINISTERED VIA CENTRAL VENOUS ROUTE
     Route: 042
     Dates: start: 20240926
  3. ELECTROLYTES NOS\MINERALS [Suspect]
     Active Substance: ELECTROLYTES NOS\MINERALS
     Indication: Parenteral nutrition
     Dosage: (MANUFACTURER: LABORATOIRE AGUETTANT S.A.S.) 10 ML AT AN UNSPECIFIED FREQUENCY ADMINISTERED VIA CENT
     Route: 042
     Dates: start: 20240926
  4. UNSPECIFIED INGREDIENT [Suspect]
     Active Substance: UNSPECIFIED INGREDIENT
     Route: 065

REACTIONS (3)
  - Red blood cell count decreased [Unknown]
  - Asthenia [Unknown]
  - Oedema [Unknown]

NARRATIVE: CASE EVENT DATE: 20241029
